FAERS Safety Report 10073695 (Version 1)
Quarter: 2014Q2

REPORT INFORMATION
  Report Type: Report from Study
  Country: US (occurrence: US)
  Receive Date: 20140411
  Receipt Date: 20140411
  Transmission Date: 20141212
  Serious: Yes (Hospitalization, Other)
  Sender: FDA-Public Use
  Company Number: US-BRISTOL-MYERS SQUIBB COMPANY-20595963

PATIENT
  Age: 65 Year
  Sex: Female
  Weight: 58.8 kg

DRUGS (1)
  1. SPRYCEL [Suspect]
     Indication: ENDOMETRIAL CANCER
     Dosage: 150 MG?LAST DOSE:11-FEB-2014
     Route: 048
     Dates: start: 20131210

REACTIONS (6)
  - Colitis [Unknown]
  - Rectal haemorrhage [Recovered/Resolved]
  - Apnoea [Recovered/Resolved]
  - Anaemia [Unknown]
  - Gastroenteritis [Unknown]
  - Neutrophil count decreased [Recovered/Resolved]
